FAERS Safety Report 23250981 (Version 1)
Quarter: 2023Q4

REPORT INFORMATION
  Report Type: Spontaneous
  Country: PT (occurrence: PT)
  Receive Date: 20231201
  Receipt Date: 20231201
  Transmission Date: 20240110
  Serious: Yes (Hospitalization, Other)
  Sender: FDA-Public Use
  Company Number: PT-009507513-2311PRT009430

PATIENT
  Age: 79 Year
  Sex: Male

DRUGS (12)
  1. RALTEGRAVIR POTASSIUM [Suspect]
     Active Substance: RALTEGRAVIR POTASSIUM
     Dosage: UNK
     Route: 048
     Dates: start: 20150717, end: 20200623
  2. JARDIANCE [Concomitant]
     Active Substance: EMPAGLIFLOZIN
     Dosage: 1 TABLET AT BREAKFAST
     Route: 048
  3. LANTUS [Concomitant]
     Active Substance: INSULIN GLARGINE
     Dosage: 18 INTERNATIONAL UNIT, QD, AT BREAKFAST
     Route: 065
  4. SERTRALINE [Concomitant]
     Active Substance: SERTRALINE HYDROCHLORIDE
     Dosage: 1 TABLET AT BREAKFAST
     Route: 048
  5. AMLODIPINE [Concomitant]
     Active Substance: AMLODIPINE BESYLATE
     Dosage: 1 TABLET AT BREAKFAST
     Route: 048
  6. FEBUXOSTAT [Concomitant]
     Active Substance: FEBUXOSTAT
     Dosage: 1 TABLET AT DINNER
     Route: 048
  7. ASPIFOX [ACETYLSALICYLIC ACID;ROSUVASTATIN CALCIUM] [Concomitant]
     Dosage: 1 TABLET AT BREAKFAST
     Route: 048
  8. DUTASTERIDE\TAMSULOSIN [Concomitant]
     Active Substance: DUTASTERIDE\TAMSULOSIN
     Dosage: 1 TABLET AT DINNER
     Route: 048
  9. DESCOVY [Concomitant]
     Active Substance: EMTRICITABINE\TENOFOVIR ALAFENAMIDE FUMARATE
     Dosage: 1 TABLET AT BREAKFAST
     Route: 048
  10. PANTOPRAZOLE [Concomitant]
     Active Substance: PANTOPRAZOLE
     Dosage: 1 TABLET AT BREAKFAST
     Route: 048
  11. BYDUREON [Concomitant]
     Active Substance: EXENATIDE
     Dosage: WEEKLY ON FRIDAYS
     Route: 065
  12. ALFACALCIDOL [Concomitant]
     Active Substance: ALFACALCIDOL
     Dosage: 0.25 MILLIGRAM, QD, AT BREAKFAST
     Route: 065

REACTIONS (10)
  - Acute myocardial infarction [Recovering/Resolving]
  - Diabetic metabolic decompensation [Recovering/Resolving]
  - Chronic kidney disease [Recovering/Resolving]
  - Cerebrovascular accident [Recovering/Resolving]
  - Hypertensive crisis [Recovering/Resolving]
  - Hospitalisation [Recovered/Resolved]
  - Drug resistance [Unknown]
  - Gout [Recovering/Resolving]
  - Alcohol abuse [Recovering/Resolving]
  - Family stress [Recovering/Resolving]

NARRATIVE: CASE EVENT DATE: 20161001
